FAERS Safety Report 5328923-X (Version None)
Quarter: 2007Q2

REPORT INFORMATION
  Report Type: 
  Country: None (occurrence: None)
  Receive Date: 20070518
  Receipt Date: 20070508
  Transmission Date: 20071010
  Serious: Yes (Hospitalization)
  Sender: FDA-Public Use
  Company Number: US-AMGEN-US223560

PATIENT
  Sex: Female

DRUGS (16)
  1. EPOGEN [Suspect]
     Indication: DIALYSIS
     Route: 058
     Dates: start: 20030920
  2. RENAGEL [Concomitant]
  3. PHOSLO [Concomitant]
  4. COLACE [Concomitant]
  5. PRILOSEC [Concomitant]
  6. INSULIN [Concomitant]
  7. SYNTHROID [Concomitant]
  8. TOPROL-XL [Concomitant]
  9. ZOCOR [Concomitant]
  10. VENOFER [Concomitant]
  11. HECTORAL [Concomitant]
  12. ASPIRIN [Concomitant]
  13. NORVASC [Concomitant]
  14. CLONIDINE [Concomitant]
  15. VASOTEC [Concomitant]
  16. COZAAR [Concomitant]

REACTIONS (3)
  - HOSPITALISATION [None]
  - SERUM FERRITIN INCREASED [None]
  - THERAPEUTIC RESPONSE DECREASED [None]
